FAERS Safety Report 4796931-3 (Version None)
Quarter: 2005Q4

REPORT INFORMATION
  Report Type: 
  Country: None (occurrence: None)
  Receive Date: 20051013
  Receipt Date: 20051003
  Transmission Date: 20060501
  Serious: Yes (Hospitalization)
  Sender: FDA-Public Use
  Company Number: US-JNJFOC-20050803295

PATIENT
  Sex: Female
  Weight: 70.31 kg

DRUGS (4)
  1. TOPAMAX [Suspect]
     Indication: MIGRAINE
     Route: 048
  2. NEURONTIN [Concomitant]
     Indication: PROPHYLAXIS
     Route: 048
  3. OXYCODONE HCL [Concomitant]
     Indication: PAIN
     Dosage: (5-10 MG)
     Route: 048
  4. BENADRYL [Concomitant]
     Dosage: 50-75 MG, BEFORE MEDICATIONS, AS NEEDED
     Route: 048

REACTIONS (3)
  - PRURITUS [None]
  - SHUNT INFECTION [None]
  - SHUNT MALFUNCTION [None]
